FAERS Safety Report 18469329 (Version 1)
Quarter: 2020Q4

REPORT INFORMATION
  Report Type: Spontaneous
  Country: JP (occurrence: JP)
  Receive Date: 20201105
  Receipt Date: 20201105
  Transmission Date: 20210114
  Serious: Yes (Other)
  Sender: FDA-Public Use
  Company Number: JP-ASTRAZENECA-2020SF41935

PATIENT
  Age: 48 Year
  Sex: Female

DRUGS (4)
  1. PALBOCICLIB [Concomitant]
     Active Substance: PALBOCICLIB
     Indication: BREAST CANCER FEMALE
     Dosage: DOSE UNKNOWN
     Route: 065
  2. PALBOCICLIB [Concomitant]
     Active Substance: PALBOCICLIB
     Indication: BREAST CANCER FEMALE
     Dosage: DOSE UNKNOWN
     Route: 065
  3. LH-RH [Concomitant]
     Indication: BREAST CANCER FEMALE
     Dosage: DOSE UNKNOWN
     Route: 065
  4. FASLODEX [Suspect]
     Active Substance: FULVESTRANT
     Indication: BREAST CANCER FEMALE
     Dosage: DOSE UNKNOWN
     Route: 030

REACTIONS (1)
  - Myelosuppression [Unknown]
